FAERS Safety Report 7138639-5 (Version None)
Quarter: 2010Q4

REPORT INFORMATION
  Report Type: 
  Country: None (occurrence: None)
  Receive Date: 20101122
  Receipt Date: 20101108
  Transmission Date: 20110411
  Serious: Yes (Other)
  Sender: FDA-Public Use
  Company Number: US-ACCORD-006689

PATIENT
  Age: 45 Year
  Sex: Male

DRUGS (1)
  1. SIMVASTATIN [Suspect]
     Indication: PRODUCT USED FOR UNKNOWN INDICATION
     Dosage: 80.00 MG

REACTIONS (2)
  - DRUG INTERACTION [None]
  - RHABDOMYOLYSIS [None]
